FAERS Safety Report 5738146-8 (Version None)
Quarter: 2008Q2

REPORT INFORMATION
  Report Type: 
  Country: None (occurrence: None)
  Receive Date: 20080509
  Receipt Date: 20070622
  Transmission Date: 20081010
  Serious: Yes (Other)
  Sender: FDA-Public Use
  Company Number: HQWYE846328JUN07

PATIENT
  Age: 79 Year
  Sex: Female
  Weight: 66 kg

DRUGS (25)
  1. PROTONIX [Suspect]
     Indication: PROPHYLAXIS
     Dosage: 40 MG, INTRAVENOUS
     Route: 042
     Dates: start: 20070620, end: 20070622
  2. DEXTROSE (GLUCOSE INJECTION) [Concomitant]
  3. SODIUM BICARBONATE IN PLASTIC CONTAINER [Concomitant]
  4. ZINC SULFATE (ZINC SULFATE) [Concomitant]
  5. ASCORBIC ACID [Concomitant]
  6. MULTIVITAMINS AND IRON (MULTIVITAMINS AND IRON) [Concomitant]
  7. LACTOBACILLUS ACIDOPHILUS (LACTOBACULLUS ACIDOPHILUS) [Concomitant]
  8. SODIUM CHLORIDE 0.9% [Concomitant]
  9. FLAGYL [Concomitant]
  10. LOVENOX [Concomitant]
  11. ZOCOR [Concomitant]
  12. LORAZEPAM [Concomitant]
  13. ARICEPT [Concomitant]
  14. ALBUTEROL [Concomitant]
  15. LEVOTHYROXINE SODIUM [Concomitant]
  16. NOREPINEPHRINE BITARTRATE [Concomitant]
  17. ACETAMINOPHEN [Concomitant]
  18. NITROSTAT [Concomitant]
  19. LIDOCAINE [Concomitant]
  20. EPINEPHRINE [Concomitant]
  21. ATROPINE [Concomitant]
  22. ROBITUSSIN (GUAIFENESIN) [Concomitant]
  23. MORPHINE [Concomitant]
  24. PAXIL [Concomitant]
  25. PLAVIX (CLOPIDOGREL SULTATE) [Concomitant]

REACTIONS (1)
  - NEPHRITIS INTERSTITIAL [None]
